FAERS Safety Report 26121246 (Version 1)
Quarter: 2025Q4

REPORT INFORMATION
  Report Type: Spontaneous
  Country: CN (occurrence: CN)
  Receive Date: 20251204
  Receipt Date: 20251204
  Transmission Date: 20260118
  Serious: Yes (Other)
  Sender: AMGEN
  Company Number: CN-AMGEN-CHNSP2025236430

PATIENT
  Age: 42 Year
  Sex: Female
  Weight: 51 kg

DRUGS (3)
  1. XGEVA [Suspect]
     Active Substance: DENOSUMAB
     Indication: Metastases to bone
     Dosage: 120 MILLIGRAM
     Route: 058
     Dates: start: 20240718
  2. SINTILIMAB [Concomitant]
     Active Substance: SINTILIMAB
     Dosage: 200 MILLIGRAM
  3. BEVACIZUMAB [Concomitant]
     Active Substance: BEVACIZUMAB
     Dosage: 400 MILLIGRAM

REACTIONS (4)
  - Melaena [Unknown]
  - Platelet count decreased [Unknown]
  - Gingival bleeding [Unknown]
  - Ecchymosis [Unknown]

NARRATIVE: CASE EVENT DATE: 20240803
